FAERS Safety Report 15916250 (Version 1)
Quarter: 2019Q1

REPORT INFORMATION
  Report Type: Spontaneous
  Country: US (occurrence: US)
  Receive Date: 20190205
  Receipt Date: 20190205
  Transmission Date: 20190417
  Serious: Yes (Disabling, Other)
  Sender: FDA-Public Use
  Company Number: None

PATIENT
  Age: 62 Year
  Sex: Female
  Weight: 57.6 kg

DRUGS (12)
  1. ATORVASTATIN [Concomitant]
     Active Substance: ATORVASTATIN
  2. CALCIUM [Concomitant]
     Active Substance: CALCIUM
  3. KLONOPIN [Concomitant]
     Active Substance: CLONAZEPAM
  4. BUPROPION HYDROCLORIDE [Suspect]
     Active Substance: BUPROPION HYDROCHLORIDE
     Indication: DEPRESSION
     Dosage: ?          OTHER STRENGTH:100 MG;QUANTITY:2 TABLET(S);?
     Route: 048
     Dates: start: 19950501
  5. VITAMIN B12 [Concomitant]
     Active Substance: CYANOCOBALAMIN
  6. BUPROPION. [Concomitant]
     Active Substance: BUPROPION
  7. ZOLOFT [Concomitant]
     Active Substance: SERTRALINE HYDROCHLORIDE
  8. MULTI VITAMIN [Concomitant]
     Active Substance: VITAMINS
  9. BUPROPION HYDROCLORIDE [Suspect]
     Active Substance: BUPROPION HYDROCHLORIDE
     Indication: MOTOR DYSFUNCTION
     Dosage: ?          OTHER STRENGTH:100 MG;QUANTITY:2 TABLET(S);?
     Route: 048
     Dates: start: 19950501
  10. COMBI-PATCH [Concomitant]
  11. BUPROPION HYDROCLORIDE [Suspect]
     Active Substance: BUPROPION HYDROCHLORIDE
     Indication: FATIGUE
     Dosage: ?          OTHER STRENGTH:100 MG;QUANTITY:2 TABLET(S);?
     Route: 048
     Dates: start: 19950501
  12. BIOTIN [Concomitant]
     Active Substance: BIOTIN

REACTIONS (3)
  - Therapeutic response changed [None]
  - Drug effect decreased [None]
  - Drug ineffective [None]

NARRATIVE: CASE EVENT DATE: 20180910
